FAERS Safety Report 4590837-0 (Version None)
Quarter: 2005Q1

REPORT INFORMATION
  Report Type: 
  Country: None (occurrence: None)
  Receive Date: 20050211
  Receipt Date: 20040121
  Transmission Date: 20050727
  Serious: Yes (Hospitalization)
  Sender: FDA-Public Use
  Company Number: 05-023

PATIENT
  Age: 14 Year
  Sex: Female

DRUGS (1)
  1. CAPOTEN [Suspect]
     Indication: CARDIAC FAILURE CONGESTIVE
     Dosage: ORAL
     Route: 048

REACTIONS (2)
  - HAEMOLYTIC ANAEMIA [None]
  - HEART VALVE REPLACEMENT [None]
